FAERS Safety Report 23077295 (Version 2)
Quarter: 2023Q4

REPORT INFORMATION
  Report Type: Spontaneous
  Country: JP (occurrence: JP)
  Receive Date: 20231018
  Receipt Date: 20231108
  Transmission Date: 20240110
  Serious: Yes (Death)
  Sender: FDA-Public Use
  Company Number: JP-MTPC-MTPC2023-0025178

PATIENT
  Age: 7 Decade
  Sex: Male

DRUGS (2)
  1. REMICADE [Suspect]
     Active Substance: INFLIXIMAB
     Indication: Psoriasis
     Route: 041
  2. REMICADE [Suspect]
     Active Substance: INFLIXIMAB
     Dosage: UNK
     Route: 041

REACTIONS (1)
  - Colon cancer [Fatal]

NARRATIVE: CASE EVENT DATE: 20100101
